FAERS Safety Report 9606732 (Version 2)
Quarter: 2013Q4

REPORT INFORMATION
  Report Type: Spontaneous
  Country: US (occurrence: US)
  Receive Date: 20131008
  Receipt Date: 20131008
  Transmission Date: 20140711
  Serious: No
  Sender: FDA-Public Use
  Company Number: US-AMGEN-USASP2013055852

PATIENT
  Sex: Female

DRUGS (5)
  1. PROLIA [Suspect]
     Indication: OSTEOPOROSIS POSTMENOPAUSAL
     Dosage: UNK UNK, Q6MO
     Route: 065
     Dates: start: 20130805
  2. VITAMIN D3 [Concomitant]
     Dosage: 2000 UNK, UNK
  3. CELEBREX [Concomitant]
     Dosage: UNK
  4. PRILOSEC                           /00661201/ [Concomitant]
     Dosage: UNK
  5. CALCIUM WITH VITAMIN D             /00944201/ [Concomitant]
     Dosage: UNK

REACTIONS (4)
  - Muscle tightness [Not Recovered/Not Resolved]
  - Muscle spasms [Unknown]
  - Asthenia [Unknown]
  - Back pain [Recovered/Resolved]
